FAERS Safety Report 8303894-2 (Version None)
Quarter: 2012Q2

REPORT INFORMATION
  Report Type: 
  Country: None (occurrence: None)
  Receive Date: 20120423
  Receipt Date: 20120418
  Transmission Date: 20120825
  Serious: Yes (Other)
  Sender: FDA-Public Use
  Company Number: PHHY2012CA021504

PATIENT
  Sex: Female

DRUGS (3)
  1. CALCIUM [Concomitant]
  2. ZOLEDRONOC ACID [Suspect]
     Indication: OSTEOPOROSIS
     Dosage: 5 MG, UNK
     Route: 042
     Dates: start: 20120229
  3. VITAMIN D [Concomitant]

REACTIONS (12)
  - INFLUENZA [None]
  - NECK PAIN [None]
  - ARTHRITIS [None]
  - HYPOAESTHESIA [None]
  - JOINT SWELLING [None]
  - OEDEMA PERIPHERAL [None]
  - ARTHRALGIA [None]
  - BACK PAIN [None]
  - PAIN [None]
  - BREAST PAIN [None]
  - PARAESTHESIA [None]
  - PAIN IN EXTREMITY [None]
